FAERS Safety Report 5060788-6 (Version None)
Quarter: 2006Q2

REPORT INFORMATION
  Report Type: 
  Country: None (occurrence: None)
  Receive Date: 20060630
  Receipt Date: 20060103
  Transmission Date: 20061013
  Serious: Yes (Other)
  Sender: FDA-Public Use
  Company Number: 2006-01-0121

PATIENT
  Age: 40 Year
  Sex: Female

DRUGS (1)
  1. ALBUTEROL [Suspect]
     Indication: ASTHMA
     Dosage: 5 MG INHALATION
     Route: 055

REACTIONS (1)
  - BRONCHOSPASM PARADOXICAL [None]
